FAERS Safety Report 6526619-X (Version None)
Quarter: 2010Q1

REPORT INFORMATION
  Report Type: 
  Country: None (occurrence: None)
  Receive Date: 20100105
  Receipt Date: 20091228
  Transmission Date: 20100710
  Serious: Yes (Other)
  Sender: FDA-Public Use
  Company Number: US-ROCHE-676661

PATIENT
  Sex: Female
  Weight: 56.7 kg

DRUGS (4)
  1. BONIVA [Suspect]
     Indication: OSTEOPENIA
     Route: 048
     Dates: start: 20040101
  2. TRICOR [Concomitant]
  3. PRAVASTATIN [Concomitant]
  4. FEMARA [Concomitant]

REACTIONS (1)
  - GASTRIC CANCER [None]
